FAERS Safety Report 25114439 (Version 1)
Quarter: 2025Q1

REPORT INFORMATION
  Report Type: Spontaneous
  Country: IT (occurrence: IT)
  Receive Date: 20250324
  Receipt Date: 20250324
  Transmission Date: 20250408
  Serious: Yes (Other)
  Sender: PFIZER
  Company Number: None

PATIENT
  Age: 31 Year
  Sex: Male

DRUGS (6)
  1. SOMATROPIN [Suspect]
     Active Substance: SOMATROPIN
  2. TESTOSTERONE [Suspect]
     Active Substance: TESTOSTERONE
  3. TESTOSTERONE PROPIONATE [Suspect]
     Active Substance: TESTOSTERONE PROPIONATE
  4. STANOZOLOL [Suspect]
     Active Substance: STANOZOLOL
  5. BOLDENONE UNDECYLENATE [Suspect]
     Active Substance: BOLDENONE UNDECYLENATE
  6. TRENBOLONE [Suspect]
     Active Substance: TRENBOLONE

REACTIONS (3)
  - Toxic cardiomyopathy [Not Recovered/Not Resolved]
  - Drug abuse [Unknown]
  - Off label use [Unknown]
